FAERS Safety Report 23681786 (Version 1)
Quarter: 2024Q1

REPORT INFORMATION
  Report Type: Other
  Country: CA (occurrence: CA)
  Receive Date: 20240328
  Receipt Date: 20240328
  Transmission Date: 20240410
  Serious: Yes (Hospitalization)
  Sender: FDA-Public Use
  Company Number: CA-002147023-NVSC2024CA027545

PATIENT
  Age: 59 Year
  Sex: Female

DRUGS (4)
  1. XOLAIR [Suspect]
     Active Substance: OMALIZUMAB
     Indication: Chronic spontaneous urticaria
     Dosage: 300 MG, 4 WEEKS, (ASSOCIATED INJECTION)
     Route: 058
     Dates: start: 20240205
  2. XOLAIR [Suspect]
     Active Substance: OMALIZUMAB
     Dosage: 300 MG, 4 WEEKS
     Route: 058
     Dates: start: 20240205
  3. BILASTINE [Concomitant]
     Active Substance: BILASTINE
     Indication: Chronic spontaneous urticaria
     Dosage: 2 DOSAGE FORM, BID
     Dates: start: 20230815
  4. BILASTINE [Concomitant]
     Active Substance: BILASTINE
     Dosage: UNK, QD

REACTIONS (57)
  - Loss of consciousness [Unknown]
  - Pulse abnormal [Unknown]
  - Blood pressure abnormal [Unknown]
  - Nervousness [Unknown]
  - Discomfort [Unknown]
  - Tremor [Recovering/Resolving]
  - Burning sensation [Unknown]
  - Feeling hot [Unknown]
  - Eyelids pruritus [Unknown]
  - Anxiety [Unknown]
  - Blood pressure increased [Recovering/Resolving]
  - Erythema [Unknown]
  - Fatigue [Unknown]
  - Muscle spasms [Unknown]
  - Feeling cold [Unknown]
  - Chest pain [Unknown]
  - Musculoskeletal stiffness [Unknown]
  - Limb discomfort [Unknown]
  - Facial discomfort [Unknown]
  - Ear discomfort [Unknown]
  - Hypoaesthesia [Unknown]
  - Pruritus [Unknown]
  - Rash erythematous [Unknown]
  - Skin discolouration [Unknown]
  - Acne [Unknown]
  - Abdominal pain [Unknown]
  - Gait disturbance [Unknown]
  - Pain in extremity [Unknown]
  - Oral discomfort [Unknown]
  - Throat irritation [Unknown]
  - Face oedema [Unknown]
  - Localised oedema [Unknown]
  - Skin disorder [Unknown]
  - Arthralgia [Unknown]
  - Chills [Unknown]
  - Pharyngeal paraesthesia [Unknown]
  - Dizziness [Unknown]
  - Tenderness [Unknown]
  - Contusion [Unknown]
  - Peripheral coldness [Unknown]
  - Pigmentation disorder [Unknown]
  - Nausea [Unknown]
  - Abdominal distension [Unknown]
  - Back pain [Unknown]
  - Somnolence [Unknown]
  - Dyspnoea [Unknown]
  - Oedema peripheral [Unknown]
  - Asthenia [Unknown]
  - Muscle tightness [Unknown]
  - Pain in jaw [Unknown]
  - Mastication disorder [Unknown]
  - Jaw disorder [Unknown]
  - Tongue discomfort [Unknown]
  - Headache [Unknown]
  - Insomnia [Unknown]
  - Balance disorder [Unknown]
  - Vein disorder [Unknown]

NARRATIVE: CASE EVENT DATE: 20240205
